FAERS Safety Report 12423321 (Version 1)
Quarter: 2016Q2

REPORT INFORMATION
  Report Type: Spontaneous
  Country: US (occurrence: None)
  Receive Date: 20160531
  Receipt Date: 20160531
  Transmission Date: 20160815
  Serious: No
  Sender: FDA-Public Use
  Company Number: None

PATIENT
  Age: 33 Year
  Sex: Female
  Weight: 61.24 kg

DRUGS (2)
  1. SULFAMETHOXAZOLE- TMP-DS AUROBINDO PHARM [Suspect]
     Active Substance: SULFAMETHOXAZOLE\TRIMETHOPRIM
     Indication: MIDDLE EAR EFFUSION
     Route: 048
     Dates: start: 20160528, end: 20160529
  2. SULFAMETHOXAZOLE- TMP-DS AUROBINDO PHARM [Suspect]
     Active Substance: SULFAMETHOXAZOLE\TRIMETHOPRIM
     Indication: SINUSITIS
     Route: 048
     Dates: start: 20160528, end: 20160529

REACTIONS (2)
  - Tremor [None]
  - Pruritus [None]

NARRATIVE: CASE EVENT DATE: 20160528
